FAERS Safety Report 6863072-0 (Version None)
Quarter: 2010Q3

REPORT INFORMATION
  Report Type: 
  Country: None (occurrence: None)
  Receive Date: 20100721
  Receipt Date: 20100716
  Transmission Date: 20110219
  Serious: Yes (Death)
  Sender: FDA-Public Use
  Company Number: IE-WYE-G06383410

PATIENT
  Sex: Male

DRUGS (5)
  1. BENEFIX [Suspect]
     Dosage: UNKNOWN
  2. OXYCODONE [Concomitant]
     Route: 048
  3. ALDACTONE [Concomitant]
     Route: 048
  4. NEXIUM [Concomitant]
     Dosage: 40MG FREQUENCY UNKNOWN
     Route: 048
  5. INDERAL [Concomitant]
     Route: 048

REACTIONS (2)
  - DEATH [None]
  - LIVER TRANSPLANT [None]
